FAERS Safety Report 8677220 (Version 2)
Quarter: 2013Q4

REPORT INFORMATION
  Report Type: Spontaneous
  Country: US (occurrence: US)
  Receive Date: 20120723
  Receipt Date: 20131031
  Transmission Date: 20140711
  Serious: No
  Sender: FDA-Public Use
  Company Number: US-009507513-2012SP026622

PATIENT
  Sex: Female

DRUGS (5)
  1. ASMANEX TWISTHALER [Suspect]
     Indication: ASTHMA
     Dosage: 1 DF, QD
  2. NASACORT [Concomitant]
  3. CLARITIN [Concomitant]
  4. PROVENTIL [Concomitant]
  5. XOPENEX [Concomitant]

REACTIONS (1)
  - Nervousness [Recovered/Resolved]
